FAERS Safety Report 21466118 (Version 1)
Quarter: 2022Q4

REPORT INFORMATION
  Report Type: Other
  Country: US (occurrence: None)
  Receive Date: 20221017
  Receipt Date: 20221017
  Transmission Date: 20230112
  Serious: Yes (Other)
  Sender: FDA-Public Use
  Company Number: US-ROCHE-3201380

PATIENT
  Age: 50 Year
  Sex: Male

DRUGS (5)
  1. BEVACIZUMAB [Suspect]
     Active Substance: BEVACIZUMAB
     Indication: Glioblastoma
     Dosage: TWO DOSES PER CYCLE, 19 CYCLES COMPLETED
     Route: 042
  2. TEMOZOLOMIDE [Suspect]
     Active Substance: TEMOZOLOMIDE
     Indication: Glioblastoma
     Dosage: 6 CYCLES, DURING DAYS 1-5 EVERY 28 DAYS
     Route: 048
  3. IRINOTECAN [Suspect]
     Active Substance: IRINOTECAN
     Indication: Glioblastoma
     Dosage: TWO INFUSIONS PER CYCLE, 8 CYCLES COMPLETED.
     Route: 042
  4. DEPATUXIZUMAB MAFODOTIN [Concomitant]
     Active Substance: DEPATUXIZUMAB MAFODOTIN
  5. TOPOTECAN [Concomitant]
     Active Substance: TOPOTECAN HYDROCHLORIDE

REACTIONS (1)
  - Myelosuppression [Unknown]
